FAERS Safety Report 25320105 (Version 3)
Quarter: 2025Q3

REPORT INFORMATION
  Report Type: Report from Study
  Country: US (occurrence: US)
  Receive Date: 20250515
  Receipt Date: 20250717
  Transmission Date: 20251021
  Serious: Yes (Hospitalization, Other)
  Sender: TAKEDA
  Company Number: US-TAKEDA-2025TUS037635

PATIENT
  Sex: Female
  Weight: 26.3 kg

DRUGS (9)
  1. TEDUGLUTIDE [Suspect]
     Active Substance: TEDUGLUTIDE
     Indication: Short-bowel syndrome
  2. TEDUGLUTIDE [Suspect]
     Active Substance: TEDUGLUTIDE
     Indication: Gastrointestinal disorder
     Dosage: UNK UNK, QOD
  3. TEDUGLUTIDE [Suspect]
     Active Substance: TEDUGLUTIDE
  4. TEDUGLUTIDE [Suspect]
     Active Substance: TEDUGLUTIDE
     Dosage: 1.2 MILLIGRAM, QD
     Dates: start: 20250615, end: 20250617
  5. ACETAZOLAMIDE [Concomitant]
     Active Substance: ACETAZOLAMIDE
     Indication: Idiopathic intracranial hypertension
     Dosage: 380 MILLIGRAM, QD
     Dates: start: 202504
  6. CLONIDINE [Concomitant]
     Active Substance: CLONIDINE
     Indication: Pain
     Dosage: 0.2 MILLIGRAM, QD
     Dates: start: 202504
  7. MIRTAZAPINE [Concomitant]
     Active Substance: MIRTAZAPINE
     Indication: Somnolence
     Dosage: 45 MILLIGRAM, QD
     Dates: start: 202503
  8. REMERON [Concomitant]
     Active Substance: MIRTAZAPINE
     Indication: Somnolence
     Dosage: 8 MILLIGRAM, QD
     Dates: start: 202502
  9. PANTOPRAZOLE [Concomitant]
     Active Substance: PANTOPRAZOLE
     Indication: Gastrooesophageal reflux disease
     Dosage: 20 MILLIGRAM, QD

REACTIONS (3)
  - Intracranial pressure increased [Recovering/Resolving]
  - Malaise [Unknown]
  - Inappropriate schedule of product administration [Recovered/Resolved]
